FAERS Safety Report 9093664 (Version 1)
Quarter: 2013Q1

REPORT INFORMATION
  Report Type: Not Available
  Country: IT (occurrence: IT)
  Receive Date: 20130131
  Receipt Date: 20130131
  Transmission Date: 20140127
  Serious: Yes (Death)
  Sender: FDA-Public Use
  Company Number: IT-ASTELLAS-2013EU000720

PATIENT
  Sex: 0

DRUGS (1)
  1. PROTOPIC [Suspect]
     Dosage: 0.1 %, UNKNOWN/D
     Route: 061

REACTIONS (1)
  - T-cell lymphoma [Fatal]
